FAERS Safety Report 21094990 (Version 7)
Quarter: 2023Q1

REPORT INFORMATION
  Report Type: Spontaneous
  Country: CA (occurrence: CA)
  Receive Date: 20220718
  Receipt Date: 20230318
  Transmission Date: 20230418
  Serious: Yes (Hospitalization, Other)
  Sender: FDA-Public Use
  Company Number: CA-CELLTRION INC.-2022CA002895

PATIENT

DRUGS (8)
  1. INFLECTRA [Suspect]
     Active Substance: INFLIXIMAB-DYYB
     Indication: Crohn^s disease
     Dosage: 5 MG/KG, INDUCTION AT WEEK 6 THEN EVERY 8 WEEKS
     Route: 042
  2. INFLECTRA [Suspect]
     Active Substance: INFLIXIMAB-DYYB
     Dosage: 5 MG/KG,INDUCTION AT 0, 2 AND WEEK 6 THEN EVERY 8 WEEKS OR 300MG
     Route: 042
     Dates: start: 20220331
  3. INFLECTRA [Suspect]
     Active Substance: INFLIXIMAB-DYYB
     Dosage: 5 MG/KG,INDUCTION AT 0, 2 AND WEEK 6 THEN EVERY 8 WEEKS
     Route: 042
     Dates: start: 20220416
  4. INFLECTRA [Suspect]
     Active Substance: INFLIXIMAB-DYYB
     Dosage: 300MG, SUPPOSED TO RECEIVE 5 MG/KG,INDUCTION AT 0, 2 AND WEEK 6 THEN EVERY 8 WEEKS
     Route: 042
     Dates: start: 20220512
  5. INFLECTRA [Suspect]
     Active Substance: INFLIXIMAB-DYYB
     Dosage: 5 MG/KG, INDUCTION AT 0, 2 AND WEEK 6 THEN EVERY 8 WEEKS
     Route: 042
     Dates: start: 20220707
  6. INFLECTRA [Suspect]
     Active Substance: INFLIXIMAB-DYYB
     Dosage: 300 MG, (SUPPOSED TO RECEIVE 5 MG/KG), INDUCTION AT 0, 2 AND WEEK 6 THEN EVERY 8 WEEKS
     Route: 042
     Dates: start: 20220922
  7. INFLECTRA [Suspect]
     Active Substance: INFLIXIMAB-DYYB
     Dosage: 5 MG/KG,INDUCTION AT 0, 2 AND WEEK 6 THEN EVERY 8 WEEKS
     Route: 042
     Dates: start: 20221228
  8. INFLECTRA [Suspect]
     Active Substance: INFLIXIMAB-DYYB
     Dosage: 300 MG, 10 WEEKS AND 1 DAY AFTER LAST INFUSION 28DEC2022 (SUPPOSED TO RECEIVE 5 MG/KG, INDUCTION AT
     Route: 042
     Dates: start: 20230309

REACTIONS (22)
  - Condition aggravated [Unknown]
  - Anal fistula [Recovered/Resolved]
  - Anal fissure [Recovered/Resolved]
  - Off label use [Unknown]
  - Off label use [Unknown]
  - Intentional product use issue [Unknown]
  - Incorrect dose administered [Unknown]
  - Inappropriate schedule of product administration [Unknown]
  - Fatigue [Not Recovered/Not Resolved]
  - Hypertension [Recovering/Resolving]
  - Abdominal discomfort [Not Recovered/Not Resolved]
  - Lethargy [Not Recovered/Not Resolved]
  - Weight increased [Unknown]
  - Hypotension [Unknown]
  - Dehydration [Unknown]
  - Dizziness [Unknown]
  - Arthralgia [Unknown]
  - Heart rate decreased [Unknown]
  - Feeling abnormal [Unknown]
  - Infrequent bowel movements [Recovering/Resolving]
  - COVID-19 [Recovered/Resolved]
  - Malaise [Unknown]

NARRATIVE: CASE EVENT DATE: 20220101
